FAERS Safety Report 25118828 (Version 1)
Quarter: 2025Q1

REPORT INFORMATION
  Report Type: Spontaneous
  Country: US (occurrence: US)
  Receive Date: 20250325
  Receipt Date: 20250325
  Transmission Date: 20250409
  Serious: Yes (Death, Other)
  Sender: ASTELLAS
  Company Number: US-ASTELLAS-2025-AER-016780

PATIENT
  Age: 67 Year
  Sex: Female

DRUGS (9)
  1. TACROLIMUS [Suspect]
     Active Substance: TACROLIMUS
     Indication: Allogenic stem cell transplantation
     Route: 065
  2. IMLIFIDASE [Concomitant]
     Active Substance: IMLIFIDASE
     Indication: Allogenic stem cell transplantation
     Route: 042
  3. IMLIFIDASE [Concomitant]
     Active Substance: IMLIFIDASE
     Route: 042
  4. CYCLOPHOSPHAMIDE [Concomitant]
     Active Substance: CYCLOPHOSPHAMIDE
     Indication: Allogenic stem cell transplantation
     Route: 065
  5. MYCOPHENOLATE MOFETIL [Concomitant]
     Active Substance: MYCOPHENOLATE MOFETIL
     Indication: Allogenic stem cell transplantation
     Route: 065
  6. ABATACEPT [Concomitant]
     Active Substance: ABATACEPT
     Indication: Allogenic stem cell transplantation
     Dosage: ABATACEPT?3, BEGINNING ON DAY +5
     Route: 065
  7. RITUXIMAB [Concomitant]
     Active Substance: RITUXIMAB
     Indication: Allogenic stem cell transplantation
     Dosage: FOUR WEEKLY DOSES
     Route: 065
  8. DARATUMUMAB [Concomitant]
     Active Substance: DARATUMUMAB
     Indication: Allogenic stem cell transplantation
     Dosage: FOLLOWED BY SEVEN WEEKLY DOSES
     Route: 065
  9. FLUDARABINE [Concomitant]
     Active Substance: FLUDARABINE PHOSPHATE
     Indication: Allogenic stem cell transplantation
     Route: 065

REACTIONS (3)
  - Endocarditis [Fatal]
  - Cardiac failure [Fatal]
  - Off label use [Unknown]
